FAERS Safety Report 7118186-7 (Version None)
Quarter: 2010Q4

REPORT INFORMATION
  Report Type: 
  Country: None (occurrence: None)
  Receive Date: 20101123
  Receipt Date: 20101110
  Transmission Date: 20110411
  Serious: Yes (Hospitalization)
  Sender: FDA-Public Use
  Company Number: US-BRISTOL-MYERS SQUIBB COMPANY-15380371

PATIENT
  Age: 60 Year
  Sex: Female

DRUGS (6)
  1. ONGLYZA [Suspect]
     Indication: DIABETES MELLITUS
     Dates: start: 20100701
  2. PROTONIX [Concomitant]
  3. EFFEXOR XR [Concomitant]
  4. METFORMIN HCL [Concomitant]
     Dosage: METFORMIN HCL ER
  5. TOPROL-XL [Concomitant]
  6. LISINOPRIL [Concomitant]

REACTIONS (1)
  - PANCREATITIS [None]
